FAERS Safety Report 19935672 (Version 3)
Quarter: 2021Q4

REPORT INFORMATION
  Report Type: Spontaneous
  Country: US (occurrence: US)
  Receive Date: 20211008
  Receipt Date: 20211022
  Transmission Date: 20220303
  Serious: No
  Sender: FDA-Public Use
  Company Number: US-SANOFI-00800503

PATIENT
  Age: 69 Year
  Sex: Male

DRUGS (1)
  1. LANTUS SOLOSTAR [Suspect]
     Active Substance: INSULIN GLARGINE
     Indication: Diabetes mellitus
     Dosage: 34 IU, QD
     Route: 065

REACTIONS (3)
  - Injection site pain [Unknown]
  - Device issue [Unknown]
  - Product dose omission issue [Unknown]
